FAERS Safety Report 23694330 (Version 5)
Quarter: 2024Q3

REPORT INFORMATION
  Report Type: Report from Study
  Country: GB (occurrence: GB)
  Receive Date: 20240401
  Receipt Date: 20240828
  Transmission Date: 20241016
  Serious: No
  Sender: SANDOZ
  Company Number: GB-SANDOZ-SDZ2024GB034076

PATIENT
  Sex: Male

DRUGS (2)
  1. HYRIMOZ [Suspect]
     Active Substance: ADALIMUMAB-ADAZ
     Dosage: 40 MG, Q2W
     Route: 058
  2. HYRIMOZ [Suspect]
     Active Substance: ADALIMUMAB-ADAZ
     Indication: Arthropathy
     Dosage: 40 MG, Q2W
     Route: 058

REACTIONS (3)
  - Injection site bruising [Unknown]
  - Injection site pain [Unknown]
  - Device difficult to use [Unknown]
